FAERS Safety Report 19632941 (Version 1)
Quarter: 2021Q3

REPORT INFORMATION
  Report Type: Spontaneous
  Country: BE (occurrence: BE)
  Receive Date: 20210730
  Receipt Date: 20210730
  Transmission Date: 20211014
  Serious: Yes (Other)
  Sender: FDA-Public Use
  Company Number: BE-AUROBINDO-AUR-APL-2021-032500

PATIENT
  Sex: Male

DRUGS (1)
  1. CETIRIZINE FILM?COATED TABLETS [Suspect]
     Active Substance: CETIRIZINE HYDROCHLORIDE
     Indication: SEASONAL ALLERGY
     Dosage: HALF A TABLET OR ONE TABLET IN A DAY, OFF LABEL USE OTHER.
     Route: 065

REACTIONS (5)
  - Heart rate abnormal [Recovered/Resolved]
  - Heart rate irregular [Recovered/Resolved]
  - Off label use [Unknown]
  - Chest pain [Recovered/Resolved]
  - Palpitations [Recovered/Resolved]
